FAERS Safety Report 10076886 (Version 1)
Quarter: 2014Q2

REPORT INFORMATION
  Report Type: Spontaneous
  Country: FR (occurrence: FR)
  Receive Date: 20140414
  Receipt Date: 20140414
  Transmission Date: 20141212
  Serious: Yes (Other)
  Sender: FDA-Public Use
  Company Number: FR-UCBSA-117288

PATIENT
  Age: 45 Year
  Sex: Female

DRUGS (1)
  1. KEPPRA [Suspect]
     Route: 048
     Dates: start: 201306, end: 20140214

REACTIONS (1)
  - Mouth ulceration [Unknown]
